FAERS Safety Report 6960897-8 (Version None)
Quarter: 2010Q3

REPORT INFORMATION
  Report Type: 
  Country: None (occurrence: None)
  Receive Date: 20100901
  Receipt Date: 20100818
  Transmission Date: 20110219
  Serious: No
  Sender: FDA-Public Use
  Company Number: US-PFIZER INC-2010074479

PATIENT
  Sex: Female
  Weight: 46 kg

DRUGS (17)
  1. LYRICA [Suspect]
     Indication: PAIN
     Dosage: 50 MG, 2X/DAY
     Route: 048
     Dates: start: 20100501, end: 20100501
  2. LYRICA [Suspect]
     Indication: NEUROPATHY PERIPHERAL
  3. BENADRYL [Suspect]
     Indication: URTICARIA
     Dosage: UNK
     Dates: start: 20100101, end: 20100101
  4. BENADRYL [Suspect]
     Indication: PRURITUS
  5. BENADRYL [Suspect]
     Indication: SCRATCH
  6. DIPHENHYDRAMINE [Suspect]
     Indication: URTICARIA
     Dosage: UNK
     Dates: start: 20100101
  7. DIPHENHYDRAMINE [Suspect]
     Indication: PRURITUS
  8. DIPHENHYDRAMINE [Suspect]
     Indication: SCRATCH
  9. CALAMINE [Suspect]
     Indication: PRURITUS
     Dosage: UNK
     Route: 061
     Dates: start: 20100101
  10. ACETYLSALICYLIC ACID [Concomitant]
     Dosage: UNK
  11. CENTRUM [Concomitant]
     Dosage: UNK
  12. LISINOPRIL [Concomitant]
     Dosage: UNK
  13. METOPROLOL [Concomitant]
     Dosage: UNK
  14. PLAVIX [Concomitant]
     Dosage: UNK
  15. SIMVASTATIN [Concomitant]
     Dosage: UNK
  16. VITAMIN B-12 [Concomitant]
     Dosage: UNK
  17. VICODIN [Concomitant]
     Dosage: UNK

REACTIONS (6)
  - DRUG INEFFECTIVE [None]
  - FATIGUE [None]
  - PRURITUS [None]
  - SOMNOLENCE [None]
  - URTICARIA [None]
  - VISUAL IMPAIRMENT [None]
